FAERS Safety Report 7978624-4 (Version None)
Quarter: 2011Q4

REPORT INFORMATION
  Report Type: 
  Country: None (occurrence: None)
  Receive Date: 20111214
  Receipt Date: 20111201
  Transmission Date: 20120403
  Serious: Yes (Hospitalization)
  Sender: FDA-Public Use
  Company Number: US-SANOFI-AVENTIS-2011SA080275

PATIENT
  Age: 50 Year
  Sex: Female

DRUGS (8)
  1. BETA BLOCKING AGENTS [Concomitant]
  2. ASPIRIN [Suspect]
     Indication: ANTIPLATELET THERAPY
     Dates: start: 20110425
  3. ALL OTHER THERAPEUTIC PRODUCTS [Suspect]
     Indication: CORONARY ARTERY DISEASE
     Dates: start: 20110425, end: 20110425
  4. TOPROL-XL [Concomitant]
  5. CLOPIDOGREL BISULFATE [Suspect]
     Route: 048
     Dates: start: 20110426
  6. EFFIENT [Concomitant]
     Dates: start: 20110609
  7. CHOLESTEROL- AND TRIGLYCERIDE REDUCERS [Concomitant]
  8. CLOPIDOGREL BISULFATE [Suspect]
     Indication: ANTIPLATELET THERAPY
     Route: 048
     Dates: start: 20110425, end: 20110425

REACTIONS (1)
  - CHEST DISCOMFORT [None]
